FAERS Safety Report 7597200-9 (Version None)
Quarter: 2011Q3

REPORT INFORMATION
  Report Type: 
  Country: None (occurrence: None)
  Receive Date: 20110708
  Receipt Date: 20100831
  Transmission Date: 20111222
  Serious: No
  Sender: FDA-Public Use
  Company Number: US-GLAXOSMITHKLINE-A0878670A

PATIENT
  Age: 3 Year
  Sex: Male

DRUGS (3)
  1. ALBUTEROL [Concomitant]
  2. FLOVENT [Suspect]
     Indication: ASTHMA
     Route: 055
     Dates: start: 20100708
  3. XOPENEX [Concomitant]

REACTIONS (1)
  - DRUG INEFFECTIVE [None]
